FAERS Safety Report 24129455 (Version 1)
Quarter: 2024Q3

REPORT INFORMATION
  Report Type: Report from Study
  Country: CA (occurrence: CA)
  Receive Date: 20240723
  Receipt Date: 20240723
  Transmission Date: 20241017
  Serious: Yes (Other)
  Sender: ABBVIE
  Company Number: CA-ABBVIE-5846870

PATIENT
  Sex: Male
  Weight: 124 kg

DRUGS (1)
  1. SKYRIZI [Suspect]
     Active Substance: RISANKIZUMAB-RZAA
     Indication: Crohn^s disease
     Dosage: 360 MG OBI?LDD: JUN 2024
     Route: 058
     Dates: start: 20231108

REACTIONS (5)
  - Anal fistula [Unknown]
  - Malaise [Unknown]
  - Abdominal pain [Unknown]
  - Diarrhoea [Unknown]
  - Arthralgia [Unknown]

NARRATIVE: CASE EVENT DATE: 20240714
